FAERS Safety Report 4433927-5 (Version None)
Quarter: 2004Q3

REPORT INFORMATION
  Report Type: 
  Country: None (occurrence: None)
  Receive Date: 20040825
  Receipt Date: 20040825
  Transmission Date: 20050211
  Serious: Yes (Hospitalization)
  Sender: FDA-Public Use
  Company Number: None

PATIENT
  Age: 75 Year
  Sex: Male
  Weight: 61.2 kg

DRUGS (9)
  1. CELECOXIB 200 MG PFIZER [Suspect]
     Indication: NON-SMALL CELL LUNG CANCER STAGE IIIA
     Dosage: 400 MG TWICE DAIL ORAL
     Route: 048
     Dates: start: 20040816, end: 20040821
  2. PLACEBO [Suspect]
  3. PACLITAXEL [Concomitant]
  4. CARBOPLATIN [Concomitant]
  5. ATORVASTATIN CALCIUM [Concomitant]
  6. HYDROCHLORTHIAZIDE AND TRIAMTERENE-MAXZIDE [Concomitant]
  7. KLONOPRIN [Concomitant]
  8. RAMIPRIL [Concomitant]
  9. ZOLPIDEM TARTRATE [Concomitant]

REACTIONS (5)
  - CHILLS [None]
  - GASTROINTESTINAL HAEMORRHAGE [None]
  - HEADACHE [None]
  - POST PROCEDURAL DIARRHOEA [None]
  - POST PROCEDURAL VOMITING [None]
